FAERS Safety Report 7727412-2 (Version None)
Quarter: 2011Q3

REPORT INFORMATION
  Report Type: 
  Country: None (occurrence: None)
  Receive Date: 20110902
  Receipt Date: 20110901
  Transmission Date: 20111222
  Serious: Yes (Death)
  Sender: FDA-Public Use
  Company Number: VE-PFIZER INC-2011188504

PATIENT
  Age: 84 Year
  Sex: Female

DRUGS (4)
  1. DIOVAN [Concomitant]
  2. NAFTIDROFURYL OXALATE [Concomitant]
     Route: 048
  3. ADALAT [Concomitant]
  4. LIPITOR [Suspect]
     Indication: HYPERCHOLESTEROLAEMIA
     Dosage: 20 MG, 1X/DAY
     Route: 048
     Dates: start: 20010101

REACTIONS (2)
  - RENAL NEOPLASM [None]
  - METASTASIS [None]
